FAERS Safety Report 18763625 (Version 1)
Quarter: 2021Q1

REPORT INFORMATION
  Report Type: Not Available
  Country: US (occurrence: None)
  Receive Date: 20210120
  Receipt Date: 20210120
  Transmission Date: 20210419
  Serious: No
  Sender: FDA-Public Use
  Company Number: US-AKORN-158609

PATIENT
  Age: 59 Year
  Sex: Male

DRUGS (1)
  1. LIDOCAINE/PRILOCAINE CREAM [Suspect]
     Active Substance: LIDOCAINE\PRILOCAINE

REACTIONS (4)
  - Marital problem [Unknown]
  - Product use in unapproved indication [Unknown]
  - Personality change due to a general medical condition [Unknown]
  - Penile size reduced [Unknown]
